FAERS Safety Report 7376897-2 (Version None)
Quarter: 2011Q1

REPORT INFORMATION
  Report Type: 
  Country: None (occurrence: None)
  Receive Date: 20110327
  Receipt Date: 20110316
  Transmission Date: 20110831
  Serious: Yes (Life-Threatening, Hospitalization)
  Sender: FDA-Public Use
  Company Number: DE-CELGENEUS-062-C5013-10122334

PATIENT
  Age: 72 Year
  Sex: Male
  Weight: 63 kg

DRUGS (21)
  1. MACROGOL [Concomitant]
     Indication: CONSTIPATION PROPHYLAXIS
     Dosage: 13.125 GRAM
     Route: 048
     Dates: start: 20100311
  2. HYDROMORPHONE [Concomitant]
     Route: 048
     Dates: start: 20100408
  3. ENOXAPARIN [Concomitant]
     Indication: THROMBOSIS PROPHYLAXIS
     Dosage: 40 MILLIGRAM
     Route: 058
     Dates: start: 20100506
  4. DEXAMETHASONE [Suspect]
     Indication: MULTIPLE MYELOMA
     Dosage: 40 MILLIGRAM
     Route: 065
     Dates: start: 20100429
  5. DEXAMETHASONE [Suspect]
     Dosage: 40 MILLIGRAM
     Route: 065
     Dates: start: 20101125, end: 20101216
  6. FRESUBIN [Concomitant]
     Route: 048
     Dates: start: 20100525
  7. ZOLEDRONIC ACID [Concomitant]
     Indication: OSTEOPOROSIS
     Route: 051
     Dates: start: 20100408
  8. ACYCLOVIR [Concomitant]
     Indication: ANTIVIRAL PROPHYLAXIS
     Dosage: 600 MILLIGRAM
     Route: 048
     Dates: start: 20100706
  9. DEXAMETHASONE [Suspect]
     Dosage: 40 MILLIGRAM
     Route: 065
     Dates: end: 20101223
  10. CALCIUM CARBONATE [Concomitant]
     Indication: OSTEOPOROSIS
     Dosage: 1200 MILLIGRAM
     Route: 048
     Dates: start: 20100216
  11. LINOLA [Concomitant]
     Indication: ERYTHEMA
     Route: 061
     Dates: start: 20101103
  12. LENALIDOMIDE [Suspect]
     Dosage: 25 MILLIGRAM
     Route: 048
     Dates: start: 20101125, end: 20101215
  13. CANDESARTAN [Concomitant]
     Dosage: 8 MILLIGRAM
     Route: 048
     Dates: start: 20090912
  14. LACTULOSE [Concomitant]
     Indication: CONSTIPATION PROPHYLAXIS
     Dosage: 10 MILLILITER
     Route: 048
     Dates: start: 20100429
  15. TORASEMID [Concomitant]
     Route: 048
     Dates: start: 20100825
  16. AMPHOTERICIN B [Concomitant]
     Indication: ANTIFUNGAL PROPHYLAXIS
     Dosage: 1 PIPETTE
     Route: 048
     Dates: start: 20100802
  17. LENALIDOMIDE [Suspect]
     Indication: MULTIPLE MYELOMA
     Dosage: 25 MILLIGRAM
     Route: 048
     Dates: start: 20100429
  18. LENALIDOMIDE [Suspect]
     Dosage: 25 MILLIGRAM
     Route: 048
     Dates: end: 20101223
  19. HYDROMORPHONE [Concomitant]
     Indication: BONE PAIN
     Dosage: 128 MILLIGRAM
     Route: 048
     Dates: start: 20100526
  20. PREGABALIN [Concomitant]
     Dosage: 300 MILLIGRAM
     Route: 048
     Dates: start: 20090526
  21. PARACETAMOL [Concomitant]
     Indication: BONE PAIN
     Route: 048
     Dates: start: 20100922

REACTIONS (3)
  - RECTAL PERFORATION [None]
  - PNEUMONIA [None]
  - ACUTE MYOCARDIAL INFARCTION [None]
